FAERS Safety Report 6389556-X (Version None)
Quarter: 2009Q4

REPORT INFORMATION
  Report Type: 
  Country: None (occurrence: None)
  Receive Date: 20091005
  Receipt Date: 20091005
  Transmission Date: 20100525
  Serious: No
  Sender: FDA-Public Use
  Company Number: None

PATIENT

DRUGS (2)
  1. DYNACIRC CR [Suspect]
  2. FUROSEMIDE [Suspect]

REACTIONS (6)
  - DEHYDRATION [None]
  - DRUG DISPENSING ERROR [None]
  - MEDICATION ERROR [None]
  - MUSCLE SPASMS [None]
  - PRODUCT LABEL ON WRONG PRODUCT [None]
  - WRONG DRUG ADMINISTERED [None]
